FAERS Safety Report 12037324 (Version 1)
Quarter: 2016Q1

REPORT INFORMATION
  Report Type: Spontaneous
  Country: IT (occurrence: IT)
  Receive Date: 20160208
  Receipt Date: 20160208
  Transmission Date: 20160526
  Serious: Yes (Hospitalization, Other)
  Sender: FDA-Public Use
  Company Number: IT-ACCORD-037435

PATIENT
  Age: 82 Year
  Sex: Male
  Weight: 95 kg

DRUGS (8)
  1. NO DRUG NAME [Concomitant]
     Dosage: 50 MG
  2. NO DRUG NAME [Concomitant]
     Dosage: 20 MG
  3. WARFARIN [Concomitant]
     Active Substance: WARFARIN
  4. TORVAST [Concomitant]
     Active Substance: ATORVASTATIN
     Dosage: 40 MG COMPRESSE
  5. BLOPRESS [Concomitant]
     Active Substance: CANDESARTAN CILEXETIL
     Dosage: 32 MG
  6. DOXAZOSIN [Concomitant]
     Active Substance: DOXAZOSIN\DOXAZOSIN MESYLATE
     Dosage: 4 MG
  7. GLIMEPIRIDE. [Suspect]
     Active Substance: GLIMEPIRIDE
     Indication: TYPE 2 DIABETES MELLITUS
     Route: 048
     Dates: start: 20120101, end: 20130115
  8. NO DRUG NAME [Concomitant]
     Dosage: 25 MG

REACTIONS (3)
  - Fasting [Recovered/Resolved]
  - Drug abuse [Unknown]
  - Hypoglycaemia [Recovered/Resolved]

NARRATIVE: CASE EVENT DATE: 20130115
